FAERS Safety Report 25021773 (Version 1)
Quarter: 2025Q1

REPORT INFORMATION
  Report Type: Spontaneous
  Country: FR (occurrence: FR)
  Receive Date: 20250228
  Receipt Date: 20250228
  Transmission Date: 20250408
  Serious: Yes (Other)
  Sender: GALDERMA
  Company Number: FR-GALDERMA-FR2025002523

PATIENT

DRUGS (1)
  1. BENZOYL PEROXIDE [Suspect]
     Active Substance: BENZOYL PEROXIDE
     Indication: Acne
     Route: 061
     Dates: start: 20240403

REACTIONS (11)
  - Angioedema [Unknown]
  - Dermatitis contact [Unknown]
  - Pruritus [Recovered/Resolved]
  - Erythema [Recovered/Resolved]
  - Eyelid oedema [Recovered/Resolved]
  - Dysphonia [Recovered/Resolved]
  - Eyelids pruritus [Recovered/Resolved]
  - Tachycardia [Recovered/Resolved]
  - Blood pressure decreased [Recovered/Resolved]
  - Exfoliative rash [Unknown]
  - Product administered at inappropriate site [Recovered/Resolved]

NARRATIVE: CASE EVENT DATE: 20240401
